FAERS Safety Report 9380950 (Version 2)
Quarter: 2014Q1

REPORT INFORMATION
  Report Type: Report from Study
  Country: CA (occurrence: CA)
  Receive Date: 20130703
  Receipt Date: 20140224
  Transmission Date: 20141002
  Serious: Yes (Other)
  Sender: FDA-Public Use
  Company Number: CA-ROCHE-1233616

PATIENT
  Age: 55 Year
  Sex: Female
  Weight: 93.9 kg

DRUGS (10)
  1. RITUXAN [Suspect]
     Indication: RHEUMATOID ARTHRITIS
     Dosage: LAST DOSE ON 13/DEC/2012
     Route: 042
     Dates: start: 20120409
  2. ACETAMINOPHEN [Concomitant]
     Route: 048
     Dates: start: 20120409
  3. METHYLPREDNISOLONE [Concomitant]
     Route: 042
     Dates: start: 20120409
  4. CELEBREX [Concomitant]
  5. LIPIDIL [Concomitant]
  6. INDAPAMIDE [Concomitant]
  7. METFORMIN [Concomitant]
  8. TYLENOL #2 (CANADA) [Concomitant]
  9. DOXAZOSIN [Concomitant]
  10. DIPHENHYDRAMINE HCL [Concomitant]

REACTIONS (3)
  - Thrombosis [Unknown]
  - Musculoskeletal stiffness [Unknown]
  - Arthralgia [Recovering/Resolving]
